FAERS Safety Report 5583137-3 (Version None)
Quarter: 2008Q1

REPORT INFORMATION
  Report Type: 
  Country: None (occurrence: None)
  Receive Date: 20080103
  Receipt Date: 20080103
  Transmission Date: 20080703
  Serious: Yes (Hospitalization)
  Sender: FDA-Public Use
  Company Number: None

PATIENT
  Age: 88 Year
  Sex: Female

DRUGS (1)
  1. AMIODARONE HCL [Suspect]
     Indication: ATRIAL FIBRILLATION
     Dosage: 200MG BID PO  (DURATION: ^A NUMBER OF YEARS^)
     Route: 048

REACTIONS (5)
  - CARDIAC FAILURE [None]
  - CONDITION AGGRAVATED [None]
  - PNEUMONIA [None]
  - PULMONARY TOXICITY [None]
  - THYROIDITIS [None]
